FAERS Safety Report 4908662-7 (Version None)
Quarter: 2006Q1

REPORT INFORMATION
  Report Type: 
  Country: None (occurrence: None)
  Receive Date: 20060210
  Receipt Date: 20051005
  Transmission Date: 20060701
  Serious: No
  Sender: FDA-Public Use
  Company Number: US-GLAXOSMITHKLINE-A0577239A

PATIENT
  Age: 44 Year
  Sex: Female

DRUGS (1)
  1. PAROXETINE HCL [Suspect]
     Indication: DEPRESSION
     Dosage: 50MG UNKNOWN
     Route: 048
     Dates: start: 20050501, end: 20050601

REACTIONS (2)
  - FEELING ABNORMAL [None]
  - WEIGHT INCREASED [None]
